FAERS Safety Report 6043456-3 (Version None)
Quarter: 2009Q1

REPORT INFORMATION
  Report Type: 
  Country: None (occurrence: None)
  Receive Date: 20090114
  Receipt Date: 20090114
  Transmission Date: 20090719
  Serious: Yes (Other)
  Sender: FDA-Public Use
  Company Number: None

PATIENT
  Age: 39 Year
  Sex: Male
  Weight: 90.7194 kg

DRUGS (1)
  1. CLOZARIL [Suspect]
     Indication: SCHIZOAFFECTIVE DISORDER
     Dosage: PO CONTINUOUS/DAILY
     Route: 048

REACTIONS (1)
  - MEMORY IMPAIRMENT [None]
